FAERS Safety Report 15978208 (Version 7)
Quarter: 2019Q2

REPORT INFORMATION
  Report Type: Report from Study
  Country: None (occurrence: JP)
  Receive Date: 20190218
  Receipt Date: 20190627
  Transmission Date: 20190711
  Serious: Yes (Hospitalization, Other)
  Sender: FDA-Public Use
  Company Number: JP-ABBVIE-17K-087-2181146-00

PATIENT
  Age: 40 Year
  Sex: Female
  Weight: 47.9 kg

DRUGS (7)
  1. DUODOPA [Suspect]
     Active Substance: CARBIDOPA\LEVODOPA
     Indication: PARKINSON^S DISEASE
     Dosage: MD: 4.0 ML?CD: 2.1 ML/HR. X 16 HR.?ED: 1.0 ML/UNIT X 2
     Route: 050
     Dates: start: 20161121, end: 201611
  2. ROTIGOTINE [Concomitant]
     Active Substance: ROTIGOTINE
     Route: 062
  3. DUODOPA [Suspect]
     Active Substance: CARBIDOPA\LEVODOPA
     Dosage: MD: 4.0 ML?CD: 2.1 ML/HR. X16 HR.?ED: 1.0 ML/UNIT X 2
     Route: 050
     Dates: start: 20161128, end: 20170116
  4. DUODOPA [Suspect]
     Active Substance: CARBIDOPA\LEVODOPA
     Dosage: MD: 4.0 ML?CD: 2.1 ML/HR. X 16 HR.?ED: 1.0 ML/UNIT X 2
     Route: 050
     Dates: start: 20170120
  5. ROTIGOTINE [Concomitant]
     Active Substance: ROTIGOTINE
     Indication: PARKINSON^S DISEASE
     Route: 048
     Dates: start: 20161209
  6. LEVODOPA/CARBIDOPA HYDRATE [Concomitant]
     Indication: PARKINSON^S DISEASE
     Route: 048
     Dates: start: 20170117, end: 20170120
  7. SELEGILINE HYDROCHLORIDE. [Concomitant]
     Active Substance: SELEGILINE HYDROCHLORIDE
     Indication: PARKINSON^S DISEASE

REACTIONS (22)
  - Stoma site pain [Recovered/Resolved]
  - Abdominal pain [Unknown]
  - Dyskinesia [Unknown]
  - On and off phenomenon [Recovered/Resolved]
  - Medical device site ulcer [Recovering/Resolving]
  - Bezoar [Unknown]
  - Device occlusion [Recovered/Resolved]
  - Device breakage [Unknown]
  - Therapeutic product effect decreased [Unknown]
  - Aspiration [Unknown]
  - Decreased appetite [Unknown]
  - Pruritus [Unknown]
  - Nausea [Recovered/Resolved]
  - Abdominal discomfort [Unknown]
  - Rash [Unknown]
  - Abdominal discomfort [Unknown]
  - Vomiting [Unknown]
  - Insomnia [Unknown]
  - Dyspepsia [Unknown]
  - Constipation [Unknown]
  - Medical device site pain [Unknown]
  - Device dislocation [Unknown]

NARRATIVE: CASE EVENT DATE: 20170115
